FAERS Safety Report 8263613-5 (Version None)
Quarter: 2012Q2

REPORT INFORMATION
  Report Type: 
  Country: None (occurrence: None)
  Receive Date: 20120405
  Receipt Date: 20120402
  Transmission Date: 20120825
  Serious: No
  Sender: FDA-Public Use
  Company Number: US-BAYER-2012-033419

PATIENT
  Age: 44 Year
  Sex: Male
  Weight: 77 kg

DRUGS (2)
  1. DOANS [MAGNESIUM SALICYLATE] [Interacting]
  2. ALEVE (CAPLET) [Suspect]
     Dosage: 200 COUNT
     Route: 048

REACTIONS (1)
  - FATIGUE [None]
